FAERS Safety Report 9956439 (Version 1)
Quarter: 2014Q1

REPORT INFORMATION
  Report Type: Report from Study
  Country: US (occurrence: US)
  Receive Date: 20140304
  Receipt Date: 20140304
  Transmission Date: 20141002
  Serious: No
  Sender: FDA-Public Use
  Company Number: US-ABBVIE-13P-163-1100242-00

PATIENT
  Age: 56 Year
  Sex: Male

DRUGS (20)
  1. HUMIRA [Suspect]
     Indication: CROHN^S DISEASE
     Dates: start: 20130419
  2. LISINOPRIL [Concomitant]
     Indication: BLOOD PRESSURE
     Dosage: 20/25 MG DAILY
  3. HYDROCORTISONE [Concomitant]
     Indication: HAEMORRHOIDS
  4. NEXIUM [Concomitant]
     Indication: CROHN^S DISEASE
  5. HYDROSCYAMINE [Concomitant]
     Indication: HAEMORRHOIDS
  6. WARFARIN [Concomitant]
     Indication: PROTEIN S DEFICIENCY
     Dosage: 5 MG DAILY ON MONDAY, WEDNESDAY, AND SUNDAY
  7. WARFARIN [Concomitant]
     Dosage: 7.5 MG DAILY ON TUESDAY, THURSDAY, AND SATURDAYS
  8. AMITRIPTYLINE [Concomitant]
     Indication: MUSCLE SPASMS
     Dosage: AT BEDTIME
  9. AMITRIPTYLINE [Concomitant]
     Indication: PAIN IN EXTREMITY
  10. FOSAMAX [Concomitant]
     Indication: OSTEOPOROSIS
     Dosage: 70 MG WEEKLY
  11. NASONEX [Concomitant]
     Indication: SINUS DISORDER
     Dosage: TWO SPRAYS EACH NOSTRIL DAILY AS NEEDED
  12. LIPITOR [Concomitant]
     Indication: BLOOD CHOLESTEROL INCREASED
     Dosage: 40 MG DAILY
  13. FISH OIL [Concomitant]
     Indication: VITAMIN SUPPLEMENTATION
  14. FERROUS SULFATE [Concomitant]
     Indication: MINERAL SUPPLEMENTATION
     Dosage: 325 MG DAILY
  15. BENADRYL [Concomitant]
     Indication: HYPERSENSITIVITY
     Dosage: AT BEDTIME
  16. VITAMIN D [Concomitant]
     Indication: VITAMIN SUPPLEMENTATION
  17. FOLIC ACID [Concomitant]
     Indication: VITAMIN SUPPLEMENTATION
     Dosage: 400 MG DAILY
  18. B COMPLEX [Concomitant]
     Indication: VITAMIN SUPPLEMENTATION
  19. CALCIUM CITRATE WITH VITAMIN D [Concomitant]
     Indication: VITAMIN SUPPLEMENTATION
     Dosage: 630 MG / 500 IU
  20. PROBIOTICS [Concomitant]
     Indication: VITAMIN SUPPLEMENTATION

REACTIONS (6)
  - Fatigue [Not Recovered/Not Resolved]
  - Injection site reaction [Not Recovered/Not Resolved]
  - Injection site reaction [Not Recovered/Not Resolved]
  - Influenza like illness [Not Recovered/Not Resolved]
  - Injection site reaction [Not Recovered/Not Resolved]
  - Injection site reaction [Not Recovered/Not Resolved]
